FAERS Safety Report 23456474 (Version 2)
Quarter: 2024Q1

REPORT INFORMATION
  Report Type: Other
  Country: US (occurrence: None)
  Receive Date: 20240130
  Receipt Date: 20240205
  Transmission Date: 20240409
  Serious: Yes (Hospitalization)
  Sender: FDA-Public Use
  Company Number: US-ROCHE-3497466

PATIENT
  Age: 64 Year
  Sex: Female
  Weight: 61.744 kg

DRUGS (11)
  1. OCREVUS [Suspect]
     Active Substance: OCRELIZUMAB
     Indication: Primary progressive multiple sclerosis
     Dosage: DATE OF TREATMENT: 17/JAN/2024 (600 MG IV EVERY 6 MONTHS)
     Route: 042
  2. OCREVUS [Suspect]
     Active Substance: OCRELIZUMAB
     Dosage: 300MG, DAY 1 AND DAY 14, AND THEN 600MG, EVERY 6 MONTHS, DATE OF TREATMENT= 23/JUN/2023
     Route: 042
  3. GABAPENTIN [Concomitant]
     Active Substance: GABAPENTIN
     Route: 048
     Dates: start: 2000
  4. CELEXA [Concomitant]
     Active Substance: CITALOPRAM HYDROBROMIDE
  5. PROVIGIL [Concomitant]
     Active Substance: MODAFINIL
  6. XANAX [Concomitant]
     Active Substance: ALPRAZOLAM
  7. TIZANIDINE [Concomitant]
     Active Substance: TIZANIDINE
  8. LISINOPRIL [Concomitant]
     Active Substance: LISINOPRIL
  9. ZOCOR [Concomitant]
     Active Substance: SIMVASTATIN
  10. SYNTHROID [Concomitant]
     Active Substance: LEVOTHYROXINE SODIUM
  11. CELEXA [Concomitant]
     Active Substance: CITALOPRAM HYDROBROMIDE

REACTIONS (5)
  - Urinary tract infection [Recovered/Resolved]
  - Headache [Unknown]
  - Memory impairment [Recovered/Resolved]
  - Pneumonia [Recovered/Resolved]
  - Alopecia [Not Recovered/Not Resolved]
